FAERS Safety Report 9320341 (Version 2)
Quarter: 2013Q3

REPORT INFORMATION
  Report Type: Report from Study
  Country: US (occurrence: US)
  Receive Date: 20130530
  Receipt Date: 20130806
  Transmission Date: 20140515
  Serious: No
  Sender: FDA-Public Use
  Company Number: US-ELI_LILLY_AND_COMPANY-US201304007165

PATIENT
  Sex: Female

DRUGS (3)
  1. TERIPARATIDE [Suspect]
     Indication: OSTEOPOROSIS
     Dosage: UNK UNK, QD
     Dates: start: 20130329
  2. TERIPARATIDE [Suspect]
     Dosage: UNK UNK, QD
     Dates: start: 20130329
  3. TERIPARATIDE [Suspect]
     Dosage: UNK, QD
     Dates: start: 20130426

REACTIONS (7)
  - Mobility decreased [Not Recovered/Not Resolved]
  - Contusion [Unknown]
  - Arthralgia [Not Recovered/Not Resolved]
  - Cardiac disorder [Unknown]
  - Dyspnoea [Unknown]
  - Hyperlipidaemia [Unknown]
  - Essential hypertension [Unknown]
